FAERS Safety Report 5299363-7 (Version None)
Quarter: 2007Q2

REPORT INFORMATION
  Report Type: 
  Country: None (occurrence: None)
  Receive Date: 20070417
  Receipt Date: 20070403
  Transmission Date: 20071010
  Serious: Yes (Hospitalization)
  Sender: FDA-Public Use
  Company Number: US-ELI_LILLY_AND_COMPANY-US200704000542

PATIENT
  Age: 17 Year
  Sex: Female

DRUGS (3)
  1. CYMBALTA [Suspect]
     Indication: DEPRESSED MOOD
     Dosage: 60 MG, DAILY (1/D)
     Dates: start: 20060101
  2. GEODON [Concomitant]
     Indication: SCHIZOAFFECTIVE DISORDER
     Dosage: UNK, UNK
  3. RAMELTEON [Concomitant]
     Indication: INSOMNIA
     Dosage: UNK, UNK
     Dates: start: 20070101

REACTIONS (3)
  - INSOMNIA [None]
  - LACTATION DISORDER [None]
  - MOOD ALTERED [None]
